FAERS Safety Report 5009272-6 (Version None)
Quarter: 2006Q2

REPORT INFORMATION
  Report Type: 
  Country: None (occurrence: None)
  Receive Date: 20060522
  Receipt Date: 20060508
  Transmission Date: 20061013
  Serious: Yes (Other)
  Sender: FDA-Public Use
  Company Number: 2006BH009431

PATIENT
  Sex: Female

DRUGS (1)
  1. VINORELBINE [Suspect]
     Indication: CERVIX CARCINOMA RECURRENT
     Dosage: 30 MG/M 2

REACTIONS (1)
  - NEUTROPENIA [None]
